FAERS Safety Report 5320837-4 (Version None)
Quarter: 2007Q2

REPORT INFORMATION
  Report Type: 
  Country: None (occurrence: None)
  Receive Date: 20070502
  Receipt Date: 20070425
  Transmission Date: 20071010
  Serious: Yes (Life-Threatening, Other)
  Sender: FDA-Public Use
  Company Number: 2007SP004503

PATIENT

DRUGS (2)
  1. ALBUTEROL SULATE [Suspect]
     Indication: ASTHMA
     Dosage: 2 DF; PRN; PO
     Route: 048
  2. WARRICK ALBUTEROL [Concomitant]

REACTIONS (3)
  - RESPIRATORY DISTRESS [None]
  - THERAPEUTIC RESPONSE UNEXPECTED WITH DRUG SUBSTITUTION [None]
  - THROAT TIGHTNESS [None]
